FAERS Safety Report 5980224-2 (Version None)
Quarter: 2008Q4

REPORT INFORMATION
  Report Type: 
  Country: None (occurrence: None)
  Receive Date: 20081205
  Receipt Date: 20081125
  Transmission Date: 20090506
  Serious: Yes (Other)
  Sender: FDA-Public Use
  Company Number: GB-AMGEN-UK301848

PATIENT
  Sex: Male

DRUGS (9)
  1. NEULASTA [Suspect]
     Indication: NEUTROPENIA
     Route: 065
     Dates: start: 20071010, end: 20071010
  2. UNSPECIFIED ANTINEOPLASTIC AGENT [Concomitant]
     Dates: start: 20071001, end: 20071001
  3. PREDNISOLONE [Concomitant]
     Route: 048
  4. WARFARIN SODIUM [Concomitant]
  5. ALENDRONATE SODIUM [Concomitant]
  6. LEVOTHYROXINE SODIUM [Concomitant]
  7. SERTRALINE [Concomitant]
  8. UNSPECIFIED MEDICATION [Concomitant]
  9. AZACITIDINE [Concomitant]

REACTIONS (2)
  - ACUTE FEBRILE NEUTROPHILIC DERMATOSIS [None]
  - NEUTROPHILIC PANNICULITIS [None]
